FAERS Safety Report 8353203 (Version 3)
Quarter: 2013Q2

REPORT INFORMATION
  Report Type: Spontaneous
  Country: US (occurrence: US)
  Receive Date: 20120125
  Receipt Date: 20130424
  Transmission Date: 20140414
  Serious: Yes (Other)
  Sender: FDA-Public Use
  Company Number: US-US-EMD SERONO, INC.-7107634

PATIENT
  Sex: Female

DRUGS (4)
  1. REBIF [Suspect]
     Indication: MULTIPLE SCLEROSIS
     Route: 058
     Dates: start: 20021021, end: 20040916
  2. REBIF [Suspect]
     Route: 058
     Dates: start: 20050201, end: 20120731
  3. REBIF [Suspect]
     Route: 058
     Dates: start: 201303
  4. REBIF [Suspect]
     Route: 058

REACTIONS (3)
  - Rheumatoid arthritis [Unknown]
  - Myopathy [Not Recovered/Not Resolved]
  - Injection site necrosis [Recovered/Resolved]
